FAERS Safety Report 4696342-5 (Version None)
Quarter: 2005Q2

REPORT INFORMATION
  Report Type: 
  Country: None (occurrence: None)
  Receive Date: 20050620
  Receipt Date: 20050610
  Transmission Date: 20051028
  Serious: Yes (Death, Life-Threatening, Hospitalization)
  Sender: FDA-Public Use
  Company Number: 2005-06-0720

PATIENT
  Age: 62 Year
  Sex: Female

DRUGS (6)
  1. PEG-INTERFERON INJECTABLE [Suspect]
     Indication: HEPATITIS C
     Dates: start: 20010101
  2. RIBAVIRIN [Suspect]
     Indication: HEPATITIS C
     Dosage: ORAL
     Route: 048
     Dates: start: 20010101
  3. SIROLIMUS (RAPAMYCIN) [Suspect]
     Indication: IMMUNOSUPPRESSION
     Dosage: 3-6 MG QD ORAL
     Route: 048
  4. PREDNISONE TAB [Concomitant]
  5. OMEPRAZOLE [Concomitant]
  6. TACROLIMUS [Concomitant]

REACTIONS (7)
  - GASTROINTESTINAL ULCER HAEMORRHAGE [None]
  - HAEMOGLOBIN DECREASED [None]
  - IMPAIRED HEALING [None]
  - JAUNDICE [None]
  - LIVER TRANSPLANT REJECTION [None]
  - PLATELET COUNT DECREASED [None]
  - SCAR [None]
